FAERS Safety Report 24875440 (Version 2)
Quarter: 2025Q1

REPORT INFORMATION
  Report Type: Spontaneous
  Country: ZA (occurrence: ZA)
  Receive Date: 20250122
  Receipt Date: 20250320
  Transmission Date: 20250409
  Serious: Yes (Other)
  Sender: PFIZER
  Company Number: ZA-PFIZER INC-PV202500008809

PATIENT
  Age: 41 Year
  Sex: Female

DRUGS (7)
  1. METHOTREXATE SODIUM [Suspect]
     Active Substance: METHOTREXATE SODIUM
     Indication: Dermatomyositis
     Dosage: 15 MG, WEEKLY
     Dates: start: 20081112
  2. METHOTREXATE SODIUM [Suspect]
     Active Substance: METHOTREXATE SODIUM
     Indication: Arthritis
  3. SALAZOPYRINE [Suspect]
     Active Substance: SULFASALAZINE
     Dosage: 1000 MG, 2X/DAY
     Dates: start: 20130718
  4. CHLOROQUINE [Suspect]
     Active Substance: CHLOROQUINE
     Dosage: 200 MG, DAILY
     Dates: start: 20130718
  5. PREDNISONE [Suspect]
     Active Substance: PREDNISONE
     Dates: start: 20120926
  6. MELOXICAM [Suspect]
     Active Substance: MELOXICAM
     Dosage: 15 MG, DAILY
     Dates: start: 20081112
  7. MABTHERA [Suspect]
     Active Substance: RITUXIMAB
     Dosage: 1000 MG 24 WEEKLY
     Dates: start: 201905

REACTIONS (2)
  - Blood creatine phosphokinase increased [Unknown]
  - Drug ineffective [Unknown]

NARRATIVE: CASE EVENT DATE: 20240115
